FAERS Safety Report 18618007 (Version 1)
Quarter: 2020Q4

REPORT INFORMATION
  Report Type: Spontaneous
  Country: SE (occurrence: SE)
  Receive Date: 20201215
  Receipt Date: 20201215
  Transmission Date: 20210114
  Serious: Yes (Other)
  Sender: FDA-Public Use
  Company Number: SE-MYLANLABS-2020M1101008

PATIENT
  Age: 51 Year
  Sex: Male

DRUGS (3)
  1. XANOR [Concomitant]
     Active Substance: ALPRAZOLAM
     Dosage: 1 TABLET WHEN NEEDED ORAL, 225MG/24 HOURS
  2. VENLAFAXINE [Suspect]
     Active Substance: VENLAFAXINE HYDROCHLORIDE
     Indication: ANXIETY
     Dosage: 225 MG PER DAY
     Route: 048
  3. CITODON                            /01259001/ [Concomitant]
     Active Substance: ACETAMINOPHEN\CODEINE PHOSPHATE
     Dosage: 1 TABLET WHEN NEEDED, MAX. 8 TABLETS/24 HOURS ORAL
     Route: 048

REACTIONS (4)
  - Micturition disorder [Unknown]
  - Libido disorder [Unknown]
  - Headache [Unknown]
  - Accommodation disorder [Unknown]

NARRATIVE: CASE EVENT DATE: 2020
